FAERS Safety Report 12443879 (Version 1)
Quarter: 2016Q2

REPORT INFORMATION
  Report Type: Spontaneous
  Country: US (occurrence: US)
  Receive Date: 20160607
  Receipt Date: 20160607
  Transmission Date: 20160815
  Serious: No
  Sender: FDA-Public Use
  Company Number: US-SA-2016SA043745

PATIENT
  Age: 51 Year
  Sex: Male

DRUGS (6)
  1. NOVOLOG [Suspect]
     Active Substance: INSULIN ASPART
     Indication: TYPE 1 DIABETES MELLITUS
     Dosage: SLIDING SCALE:80-150=5 UNITS, 150-200=6 UNITS, 200-250=7 UNITS, }250=8 UNITS
     Route: 065
     Dates: start: 20160210, end: 20160220
  2. TOUJEO [Suspect]
     Active Substance: INSULIN GLARGINE
     Indication: TYPE 1 DIABETES MELLITUS
     Dosage: DOSE:24 UNIT(S)
     Route: 065
     Dates: start: 20160210, end: 20160220
  3. LANTUS SOLOSTAR [Concomitant]
     Active Substance: INSULIN GLARGINE
  4. SOLOSTAR [Concomitant]
     Active Substance: DEVICE
  5. SOLOSTAR [Concomitant]
     Active Substance: DEVICE
  6. TOUJEO [Suspect]
     Active Substance: INSULIN GLARGINE
     Indication: TYPE 1 DIABETES MELLITUS
     Dosage: DOSE:24 UNIT(S)
     Route: 065
     Dates: start: 20160210, end: 20160220

REACTIONS (4)
  - Dizziness [Recovering/Resolving]
  - Vomiting [Recovering/Resolving]
  - Blood glucose increased [Recovering/Resolving]
  - Dehydration [Recovering/Resolving]

NARRATIVE: CASE EVENT DATE: 201602
